FAERS Safety Report 9664436 (Version 1)
Quarter: 2013Q4

REPORT INFORMATION
  Report Type: Spontaneous
  Country: US (occurrence: None)
  Receive Date: 20131030
  Receipt Date: 20131030
  Transmission Date: 20140711
  Serious: No
  Sender: FDA-Public Use
  Company Number: None

PATIENT
  Age: 50 Year
  Sex: Female

DRUGS (4)
  1. RIBAVIRIN [Suspect]
     Indication: HEPATITIS C
     Route: 048
     Dates: start: 20130930
  2. RIBAVIRIN [Suspect]
     Indication: COMA HEPATIC
     Route: 048
     Dates: start: 20130930
  3. INCIVEK [Suspect]
     Indication: HEPATITIS C
     Dates: start: 20130930
  4. INCIVEK [Suspect]
     Indication: COMA HEPATIC
     Dates: start: 20130930

REACTIONS (3)
  - Influenza [None]
  - Anxiety [None]
  - Malaise [None]
